FAERS Safety Report 17440009 (Version 2)
Quarter: 2022Q2

REPORT INFORMATION
  Report Type: Spontaneous
  Country: US (occurrence: US)
  Receive Date: 20200220
  Receipt Date: 20220502
  Transmission Date: 20220721
  Serious: No
  Sender: FDA-Public Use
  Company Number: US-PFIZER INC-2020074501

PATIENT
  Age: 77 Year
  Sex: Male
  Weight: 93.89 kg

DRUGS (2)
  1. LYRICA [Suspect]
     Active Substance: PREGABALIN
     Indication: Neuropathy peripheral
     Dosage: 75 MG, 3X/DAY
     Route: 048
     Dates: start: 2019
  2. LYRICA [Suspect]
     Active Substance: PREGABALIN
     Dosage: 375 MG (LYRICA 75MG CAPSULE: 1 CAP AM, 2 CAPS PM, 2 CAPS AT BEDTIME)
     Dates: start: 2021

REACTIONS (2)
  - Crying [Unknown]
  - Off label use [Unknown]

NARRATIVE: CASE EVENT DATE: 20190101
